FAERS Safety Report 6625074-9 (Version None)
Quarter: 2010Q1

REPORT INFORMATION
  Report Type: 
  Country: None (occurrence: None)
  Receive Date: 20100310
  Receipt Date: 20090928
  Transmission Date: 20100710
  Serious: No
  Sender: FDA-Public Use
  Company Number: US-BIOGENIDEC-2009BI030906

PATIENT
  Age: 37 Year
  Sex: Female

DRUGS (2)
  1. AVONEX [Suspect]
     Indication: MULTIPLE SCLEROSIS
     Route: 030
     Dates: start: 20090303
  2. MOTRIN [Concomitant]
     Indication: PREMEDICATION
     Route: 048

REACTIONS (7)
  - FEELING ABNORMAL [None]
  - HAEMORRHAGE [None]
  - INJECTION SITE MASS [None]
  - INJECTION SITE PAIN [None]
  - INJECTION SITE URTICARIA [None]
  - PAIN [None]
  - SLUGGISHNESS [None]
